FAERS Safety Report 7724188-X (Version None)
Quarter: 2011Q3

REPORT INFORMATION
  Report Type: 
  Country: None (occurrence: None)
  Receive Date: 20110901
  Receipt Date: 20110823
  Transmission Date: 20111222
  Serious: Yes (Death, Other)
  Sender: FDA-Public Use
  Company Number: IT-MPIJNJ-2011-03430

PATIENT

DRUGS (3)
  1. VELCADE [Suspect]
     Indication: MULTIPLE MYELOMA
     Dosage: 1.86 MG, CYCLIC
     Route: 042
     Dates: start: 20110216, end: 20110223
  2. PREDNISONE [Concomitant]
     Dosage: 75 MG, UNK
     Dates: start: 20110224, end: 20110308
  3. DEXAMETHASONE SODIUM PHOSPHATE [Concomitant]
     Dosage: 2 MG, UNK
     Route: 048
     Dates: start: 20110224, end: 20110308

REACTIONS (3)
  - SOPOR [None]
  - DEATH [None]
  - CONFUSIONAL STATE [None]
